FAERS Safety Report 7677161-4 (Version None)
Quarter: 2011Q3

REPORT INFORMATION
  Report Type: 
  Country: None (occurrence: None)
  Receive Date: 20110811
  Receipt Date: 20110728
  Transmission Date: 20111222
  Serious: Yes (Other)
  Sender: FDA-Public Use
  Company Number: US-ELI_LILLY_AND_COMPANY-US201105008022

PATIENT
  Sex: Male
  Weight: 69.8 kg

DRUGS (8)
  1. AMLODIPINE [Concomitant]
     Dosage: 2.5 MG, QD
     Route: 048
  2. LANTUS [Concomitant]
     Dosage: 17 U, QD
  3. FORTEO [Suspect]
     Indication: OSTEOPOROSIS
     Dosage: 20 UG, QD
     Route: 048
     Dates: end: 20110527
  4. ANDROGEL [Concomitant]
     Indication: VERTEBROPLASTY
  5. TEKTURNA [Concomitant]
     Dosage: 300 MG, QD
     Route: 048
  6. CALCIUM CARBONATE [Concomitant]
     Dosage: 600 MG, QD
     Route: 048
  7. VITAMIN D [Concomitant]
     Dosage: 5000 IU, QD
     Route: 048
  8. HUMALOG MIX 75/25 [Concomitant]
     Dosage: 6 U, PRN
     Route: 058

REACTIONS (3)
  - METASTASES TO BONE [None]
  - PROSTATE CANCER STAGE II [None]
  - INCORRECT ROUTE OF DRUG ADMINISTRATION [None]
